FAERS Safety Report 4598023-5 (Version None)
Quarter: 2005Q1

REPORT INFORMATION
  Report Type: 
  Country: None (occurrence: None)
  Receive Date: 20050204
  Receipt Date: 20040927
  Transmission Date: 20050727
  Serious: Yes (Death, Hospitalization, Other)
  Sender: FDA-Public Use
  Company Number: PHEH2004US09736

PATIENT
  Age: 63 Year
  Sex: Female
  Weight: 57.6 kg

DRUGS (6)
  1. CLOZARIL [Suspect]
     Indication: SCHIZOPHRENIA
     Dosage: ORAL
     Route: 048
  2. CLOZARIL [Suspect]
     Dosage: 12.5MG BID + 25MG QHS
     Dates: start: 20040806, end: 20040828
  3. ABILIFY [Concomitant]
  4. LABETALOL HCL [Concomitant]
  5. THIORIDAZINE HCL [Concomitant]
  6. LITHIUM CARBONATE [Concomitant]

REACTIONS (6)
  - AGRANULOCYTOSIS [None]
  - ANOREXIA [None]
  - ASTHENIA [None]
  - LEUKOCYTOSIS [None]
  - PYREXIA [None]
  - STOMATITIS [None]
